FAERS Safety Report 16851709 (Version 1)
Quarter: 2019Q3

REPORT INFORMATION
  Report Type: Spontaneous
  Country: US (occurrence: US)
  Receive Date: 20190925
  Receipt Date: 20190925
  Transmission Date: 20191005
  Serious: Yes (Other)
  Sender: FDA-Public Use
  Company Number: US-SUNOVION-2019SUN003958

PATIENT

DRUGS (4)
  1. INVEGA [Concomitant]
     Active Substance: PALIPERIDONE
     Dosage: UNK
     Route: 065
  2. HALDOL [Concomitant]
     Active Substance: HALOPERIDOL
     Dosage: 5 MG EVERY 6 HOURS
     Route: 065
  3. LATUDA [Suspect]
     Active Substance: LURASIDONE HYDROCHLORIDE
     Dosage: 160 MG
     Route: 048
  4. CARVEDILOL. [Concomitant]
     Active Substance: CARVEDILOL
     Dosage: UNK
     Route: 065

REACTIONS (1)
  - Electrocardiogram ST segment elevation [Unknown]
